FAERS Safety Report 9438005 (Version 1)
Quarter: 2013Q3

REPORT INFORMATION
  Report Type: Spontaneous
  Country: US (occurrence: US)
  Receive Date: 20130802
  Receipt Date: 20130802
  Transmission Date: 20140515
  Serious: No
  Sender: FDA-Public Use
  Company Number: US-BRISTOL-MYERS SQUIBB COMPANY-18951459

PATIENT
  Age: 81 Year
  Sex: Male
  Weight: 58.96 kg

DRUGS (14)
  1. COUMADIN [Suspect]
     Indication: ATRIAL FIBRILLATION
     Dosage: 1DF:5MG 3X WEEKLY/7.5MG 4X WEEKLY
  2. SYSTANE [Suspect]
     Indication: DRY EYE
     Dosage: 1DF:1-2 DROPS EACH EYE
  3. SUCRALFATE [Concomitant]
  4. KLOR-CON [Concomitant]
  5. EPLERENONE [Concomitant]
  6. DIGOXIN [Concomitant]
     Dosage: 1DF:0.25 UNIT NOS
  7. TRIAMTERENE + HCTZ [Concomitant]
     Dosage: 1DF:37.5 UNIT NOS
  8. IRBESARTAN [Concomitant]
  9. TERAZOSIN [Concomitant]
  10. COLACE [Concomitant]
  11. FAMCICLOVIR [Concomitant]
     Indication: HERPES VIRUS INFECTION
  12. VITAMIN D3 [Concomitant]
     Dosage: 1DF:1000 UNITS NOS
  13. CAMPHOR [Concomitant]
     Dosage: SUPPOSITORIES
  14. VITAMIN B COMPLEX [Concomitant]

REACTIONS (1)
  - International normalised ratio increased [Unknown]
